FAERS Safety Report 4315543-9 (Version None)
Quarter: 2004Q1

REPORT INFORMATION
  Report Type: 
  Country: None (occurrence: None)
  Receive Date: 20040311
  Receipt Date: 20040304
  Transmission Date: 20041129
  Serious: Yes (Other)
  Sender: FDA-Public Use
  Company Number: PHEH2004US02690

PATIENT
  Age: 31 Year
  Sex: Female
  Weight: 77 kg

DRUGS (3)
  1. CLOZARIL [Suspect]
     Dosage: 250 MG/DAY
     Route: 048
     Dates: start: 19920101, end: 20030601
  2. PHENOBARBITAL TAB [Concomitant]
  3. PAXIL [Concomitant]

REACTIONS (14)
  - ADRENAL INSUFFICIENCY [None]
  - ANOREXIA [None]
  - CONVULSION [None]
  - DIARRHOEA [None]
  - DRUG WITHDRAWAL SYNDROME [None]
  - FATIGUE [None]
  - GRAND MAL CONVULSION [None]
  - MUSCULAR WEAKNESS [None]
  - NAUSEA [None]
  - PETIT MAL EPILEPSY [None]
  - VISION BLURRED [None]
  - VISUAL ACUITY REDUCED [None]
  - VOMITING [None]
  - WEIGHT DECREASED [None]
